FAERS Safety Report 26129838 (Version 1)
Quarter: 2025Q4

REPORT INFORMATION
  Report Type: Spontaneous
  Country: US (occurrence: US)
  Receive Date: 20251208
  Receipt Date: 20251208
  Transmission Date: 20260117
  Serious: Yes (Hospitalization, Other)
  Sender: AMNEAL
  Company Number: US-AMNEAL PHARMACEUTICALS-2025-AMRX-04672

PATIENT
  Age: 17 Year
  Sex: Female

DRUGS (2)
  1. FLECAINIDE ACETATE [Suspect]
     Active Substance: FLECAINIDE ACETATE
     Indication: Intentional overdose
     Dosage: UNK
     Route: 065
  2. FLECAINIDE ACETATE [Suspect]
     Active Substance: FLECAINIDE ACETATE
     Indication: Product used for unknown indication

REACTIONS (5)
  - Seizure [Unknown]
  - Intentional overdose [Unknown]
  - Cardiac arrest [Unknown]
  - Ventricular tachycardia [Unknown]
  - Hypotension [Unknown]
